FAERS Safety Report 6917789-X (Version None)
Quarter: 2010Q3

REPORT INFORMATION
  Report Type: 
  Country: None (occurrence: None)
  Receive Date: 20100806
  Receipt Date: 20091210
  Transmission Date: 20110219
  Serious: Yes (Other)
  Sender: FDA-Public Use
  Company Number: IDA-00393

PATIENT
  Age: 72 Year
  Sex: Male

DRUGS (8)
  1. PRIMIDONE [Suspect]
     Indication: ESSENTIAL TREMOR
     Dosage: 250 MG DAILY / 500 MG DAILY / DOSE TEXT: INCREASED DOSE ORAL FORMULATION: / ORAL FORMULATION: / ORAL
     Route: 048
  2. PROPRANOLOL [Suspect]
     Indication: ESSENTIAL TREMOR
     Dosage: DOSE TEXT: 20 MG DAILY DIVIDED IN TWO DOSES / 120 MG DAILY / 80 MG DAILY
  3. TOPIRAMATE [Suspect]
     Indication: ESSENTIAL TREMOR
  4. (LEVODOPA) [Concomitant]
  5. CLONAZEPAM [Concomitant]
  6. MIRTAZAPINE [Concomitant]
  7. LEVETIRACETAM [Concomitant]
  8. GABAPENTIN [Concomitant]

REACTIONS (5)
  - ACTIVITIES OF DAILY LIVING IMPAIRED [None]
  - MIGRAINE [None]
  - ORTHOSTATIC HYPOTENSION [None]
  - SERONEGATIVE ARTHRITIS [None]
  - SOMNOLENCE [None]
